FAERS Safety Report 21867945 (Version 1)
Quarter: 2023Q1

REPORT INFORMATION
  Report Type: Spontaneous
  Country: US (occurrence: US)
  Receive Date: 20230116
  Receipt Date: 20230116
  Transmission Date: 20230417
  Serious: No
  Sender: FDA-Public Use
  Company Number: US-Blueprint Medicines Corporation-711

PATIENT
  Sex: Male

DRUGS (1)
  1. AYVAKIT [Suspect]
     Active Substance: AVAPRITINIB
     Indication: Systemic mastocytosis
     Route: 065

REACTIONS (7)
  - Emotional distress [Unknown]
  - Depression [Unknown]
  - Memory impairment [Unknown]
  - Ageusia [Unknown]
  - Decreased appetite [Unknown]
  - Nausea [Unknown]
  - Product dose omission in error [Unknown]
